FAERS Safety Report 14207887 (Version 1)
Quarter: 2017Q4

REPORT INFORMATION
  Report Type: Spontaneous
  Country: US (occurrence: None)
  Receive Date: 20171114
  Receipt Date: 20171114
  Transmission Date: 20180321
  Serious: No
  Sender: FDA-Public Use
  Company Number: None

PATIENT
  Age: 54 Year
  Sex: Female

DRUGS (1)
  1. IMATINIB 400MG SUN PHARMA [Suspect]
     Active Substance: IMATINIB
     Indication: CHRONIC MYELOID LEUKAEMIA
     Route: 048
     Dates: start: 20170126, end: 20170929

REACTIONS (5)
  - Night sweats [None]
  - Product substitution issue [None]
  - Skin odour abnormal [None]
  - Eye irritation [None]
  - Sleep disorder [None]

NARRATIVE: CASE EVENT DATE: 20171004
